FAERS Safety Report 11887528 (Version 1)
Quarter: 2016Q1

REPORT INFORMATION
  Report Type: Spontaneous
  Country: IT (occurrence: IT)
  Receive Date: 20160105
  Receipt Date: 20160105
  Transmission Date: 20160526
  Serious: Yes (Other)
  Sender: FDA-Public Use
  Company Number: PHHY2015IT170857

PATIENT
  Age: 59 Year
  Sex: Female

DRUGS (3)
  1. AZATHIOPRINE. [Suspect]
     Active Substance: AZATHIOPRINE
     Indication: SYSTEMIC SCLEROSIS
     Dosage: 2 MG, QD
     Route: 065
  2. PREDNISONE. [Suspect]
     Active Substance: PREDNISONE
     Indication: SYSTEMIC SCLEROSIS
     Dosage: 5 MG, QD
     Route: 065
  3. SOMATOSTATIN [Suspect]
     Active Substance: SOMATOSTATIN
     Indication: SYSTEMIC SCLEROSIS
     Dosage: 50 UG, QD
     Route: 065

REACTIONS (1)
  - Microscopic polyangiitis [Unknown]
